FAERS Safety Report 12931400 (Version 2)
Quarter: 2016Q4

REPORT INFORMATION
  Report Type: Spontaneous
  Country: MX (occurrence: MX)
  Receive Date: 20161110
  Receipt Date: 20161115
  Transmission Date: 20170207
  Serious: Yes (Other)
  Sender: FDA-Public Use
  Company Number: MX-PFIZER INC-2016520975

PATIENT
  Age: 33 Year
  Sex: Male

DRUGS (5)
  1. AZULFIDINE [Suspect]
     Active Substance: SULFASALAZINE
     Dosage: 1 DF, 2X/DAY
  2. AZULFIDINE [Suspect]
     Active Substance: SULFASALAZINE
     Indication: SPONDYLITIS
     Dosage: 1 DF, 1X/DAY
  3. AZULFIDINE [Suspect]
     Active Substance: SULFASALAZINE
     Dosage: 1 DF, 3X/DAY
  4. CELEBREX [Suspect]
     Active Substance: CELECOXIB
     Indication: SPONDYLITIS
     Dosage: 200 MG, 1X/DAY
  5. AZULFIDINE [Suspect]
     Active Substance: SULFASALAZINE
     Dosage: 1 DF, 4X/DAY

REACTIONS (14)
  - Dyspnoea [Unknown]
  - Abasia [Unknown]
  - Headache [Unknown]
  - Vomiting [Unknown]
  - Abdominal pain upper [Unknown]
  - Cough [Unknown]
  - Oropharyngeal pain [Unknown]
  - Gastritis [Unknown]
  - Dizziness [Unknown]
  - Stomatitis [Unknown]
  - Drug hypersensitivity [Unknown]
  - Rash generalised [Unknown]
  - Inflammation [Unknown]
  - Skin burning sensation [Unknown]

NARRATIVE: CASE EVENT DATE: 20161108
